FAERS Safety Report 6012405-6 (Version None)
Quarter: 2008Q4

REPORT INFORMATION
  Report Type: 
  Country: None (occurrence: None)
  Receive Date: 20081218
  Receipt Date: 20081009
  Transmission Date: 20090506
  Serious: No
  Sender: FDA-Public Use
  Company Number: US-ASTRAZENECA-2008UW22262

PATIENT
  Age: 53 Year
  Sex: Male

DRUGS (3)
  1. SYMBICORT [Suspect]
     Dosage: 160/4.5 UG ONE PUFF TWICE DAILY
     Route: 055
  2. SINGULAIR [Concomitant]
  3. ZYRTEC [Concomitant]

REACTIONS (2)
  - OROPHARYNGEAL PAIN [None]
  - THROAT TIGHTNESS [None]
